FAERS Safety Report 18297683 (Version 1)
Quarter: 2020Q3

REPORT INFORMATION
  Report Type: Spontaneous
  Country: JP (occurrence: JP)
  Receive Date: 20200923
  Receipt Date: 20200923
  Transmission Date: 20201103
  Serious: Yes (Other)
  Sender: FDA-Public Use
  Company Number: JP-SUN PHARMACEUTICAL INDUSTRIES LTD-2020RR-261707

PATIENT
  Age: 53 Year
  Sex: Female

DRUGS (3)
  1. CARBOPLATIN. [Suspect]
     Active Substance: CARBOPLATIN
     Indication: LUNG ADENOCARCINOMA STAGE IV
     Dosage: 6 COURSES, UNK
     Route: 065
     Dates: start: 201611
  2. GEMCITABINE. [Suspect]
     Active Substance: GEMCITABINE
     Indication: LUNG ADENOCARCINOMA STAGE IV
     Dosage: 7 COURSES, UNK
     Route: 065
     Dates: start: 201612
  3. PACLITAXEL. [Suspect]
     Active Substance: PACLITAXEL
     Indication: LUNG ADENOCARCINOMA STAGE IV
     Dosage: 6 COURSES, UNK
     Route: 065
     Dates: start: 201611

REACTIONS (2)
  - Therapeutic product effect incomplete [Unknown]
  - Therapy partial responder [Unknown]
